FAERS Safety Report 9501611 (Version 6)
Quarter: 2016Q2

REPORT INFORMATION
  Report Type: Spontaneous
  Country: US (occurrence: US)
  Receive Date: 20130905
  Receipt Date: 20160401
  Transmission Date: 20160815
  Serious: Yes (Hospitalization, Other)
  Sender: FDA-Public Use
  Company Number: US-009507513-1308USA014472

PATIENT
  Sex: Male

DRUGS (7)
  1. PROPECIA [Suspect]
     Active Substance: FINASTERIDE
     Dosage: UNK
     Route: 048
     Dates: start: 20100119, end: 20100405
  2. FINASTERIDE. [Suspect]
     Active Substance: FINASTERIDE
     Indication: ANDROGENETIC ALOPECIA
     Dosage: 0.25 DF, QD
     Route: 048
     Dates: start: 20101105
  3. PROPECIA [Suspect]
     Active Substance: FINASTERIDE
     Indication: ANDROGENETIC ALOPECIA
     Dosage: 1 MG, QD
     Route: 048
     Dates: start: 20050715, end: 20071018
  4. FINASTERIDE. [Suspect]
     Active Substance: FINASTERIDE
     Indication: ANDROGENETIC ALOPECIA
     Dosage: 1 MG, UNKNOWN
     Route: 048
     Dates: end: 20071105
  5. WARFARIN [Concomitant]
     Active Substance: WARFARIN
     Indication: AORTIC VALVE REPLACEMENT
     Dosage: UNK, UNKNOWN
     Route: 048
     Dates: start: 198705
  6. PROPECIA [Suspect]
     Active Substance: FINASTERIDE
     Dosage: 2 MG, QD
     Route: 048
     Dates: start: 20071018, end: 20100127
  7. FINASTERIDE. [Suspect]
     Active Substance: FINASTERIDE
     Indication: ANDROGENETIC ALOPECIA
     Dosage: 5 MG, UNKNOWN
     Route: 048
     Dates: start: 20071018, end: 20071105

REACTIONS (20)
  - Erectile dysfunction [Unknown]
  - Loss of libido [Unknown]
  - Wrong technique in product usage process [Unknown]
  - Cardiac pacemaker replacement [Unknown]
  - Anxiety [Unknown]
  - Sexual dysfunction [Unknown]
  - Hepatitis C [Unknown]
  - Prescribed overdose [Unknown]
  - Varicose vein [Unknown]
  - Heart valve replacement [Unknown]
  - Heart valve operation [Unknown]
  - Drug ineffective [Unknown]
  - Cardiac pacemaker replacement [Unknown]
  - Panic attack [Unknown]
  - Depression [Unknown]
  - Drug administration error [Unknown]
  - Hypertension [Unknown]
  - Coagulopathy [Unknown]
  - Anger [Unknown]
  - Nocturia [Unknown]

NARRATIVE: CASE EVENT DATE: 200608
